FAERS Safety Report 4296542-2 (Version None)
Quarter: 2004Q1

REPORT INFORMATION
  Report Type: 
  Country: None (occurrence: None)
  Receive Date: 20040122
  Receipt Date: 20031112
  Transmission Date: 20041129
  Serious: Yes (Other)
  Sender: FDA-Public Use
  Company Number: 2003117915

PATIENT

DRUGS (1)
  1. RELPAX [Suspect]
     Indication: ILL-DEFINED DISORDER
     Dosage: 40 MG (ONCE)

REACTIONS (1)
  - FEELING ABNORMAL [None]
